FAERS Safety Report 6693184-6 (Version None)
Quarter: 2010Q2

REPORT INFORMATION
  Report Type: 
  Country: None (occurrence: None)
  Receive Date: 20100422
  Receipt Date: 20100413
  Transmission Date: 20101027
  Serious: Yes (Hospitalization)
  Sender: FDA-Public Use
  Company Number: US-ELI_LILLY_AND_COMPANY-US201003001784

PATIENT
  Sex: Female
  Weight: 70 kg

DRUGS (8)
  1. BYETTA [Suspect]
     Indication: TYPE 2 DIABETES MELLITUS
     Dosage: UNK, UNKNOWN
     Route: 058
     Dates: end: 20100310
  2. LANTUS [Concomitant]
     Dosage: UNK, UNKNOWN
  3. RANITIDINE [Concomitant]
  4. ISOSORBIDE DINITRATE [Concomitant]
  5. PLAVIX [Concomitant]
  6. ASPIRIN [Concomitant]
  7. IRON SULFATETHIAMIN COMPOUND TAB [Concomitant]
  8. ATACAND HCT [Concomitant]

REACTIONS (2)
  - OFF LABEL USE [None]
  - PANCREATITIS [None]
